FAERS Safety Report 6969642-3 (Version None)
Quarter: 2010Q3

REPORT INFORMATION
  Report Type: 
  Country: None (occurrence: None)
  Receive Date: 20100908
  Receipt Date: 20100901
  Transmission Date: 20110219
  Serious: Yes (Other)
  Sender: FDA-Public Use
  Company Number: GB-SP-2010-04827

PATIENT
  Age: 68 Year
  Sex: Male

DRUGS (1)
  1. IMMUCYST [Suspect]
     Indication: CARCINOMA IN SITU
     Dosage: NOT REPORTED
     Route: 065

REACTIONS (3)
  - BLADDER CANCER RECURRENT [None]
  - CYSTITIS [None]
  - DRUG INTOLERANCE [None]
